FAERS Safety Report 16107947 (Version 1)
Quarter: 2019Q1

REPORT INFORMATION
  Report Type: Spontaneous
  Country: DE (occurrence: DE)
  Receive Date: 20190322
  Receipt Date: 20190322
  Transmission Date: 20190418
  Serious: Yes (Other)
  Sender: FDA-Public Use
  Company Number: DE-ALLERGAN-1912343US

PATIENT
  Sex: Female
  Weight: 53 kg

DRUGS (1)
  1. ESCITALOPRAM OXALATE - BP [Suspect]
     Active Substance: ESCITALOPRAM OXALATE
     Indication: DEPRESSION
     Dosage: 10 MG, QD
     Route: 048
     Dates: start: 20190221, end: 20190304

REACTIONS (4)
  - Depersonalisation/derealisation disorder [Recovered/Resolved]
  - Product use issue [Unknown]
  - Suicidal ideation [Recovering/Resolving]
  - Mydriasis [Recovered/Resolved]

NARRATIVE: CASE EVENT DATE: 20190225
